FAERS Safety Report 15388061 (Version 2)
Quarter: 2018Q3

REPORT INFORMATION
  Report Type: Report from Study
  Country: US (occurrence: US)
  Receive Date: 20180915
  Receipt Date: 20180928
  Transmission Date: 20181010
  Serious: No
  Sender: FDA-Public Use
  Company Number: PHEH2018US037190

PATIENT
  Sex: Male

DRUGS (2)
  1. ENTRESTO [Suspect]
     Active Substance: SACUBITRIL\VALSARTAN
     Dosage: 100 MG (49 MG SACUBITRIL, 51 MG VALSARTAN), UNK
     Route: 048
  2. ENTRESTO [Suspect]
     Active Substance: SACUBITRIL\VALSARTAN
     Indication: PRODUCT USED FOR UNKNOWN INDICATION
     Dosage: 50 MG (24 MG SACUBITRIL, 26 MG VALSARTAN), UNK
     Route: 048

REACTIONS (1)
  - Pain [Unknown]
